FAERS Safety Report 19820749 (Version 1)
Quarter: 2021Q3

REPORT INFORMATION
  Report Type: Spontaneous
  Country: US (occurrence: US)
  Receive Date: 20210912
  Receipt Date: 20210912
  Transmission Date: 20211014
  Serious: Yes (Other)
  Sender: FDA-Public Use
  Company Number: None

PATIENT
  Age: 36 Year
  Sex: Female
  Weight: 97.65 kg

DRUGS (1)
  1. KETOCONAZOLE CREAM 2% [Suspect]
     Active Substance: KETOCONAZOLE
     Indication: RASH
     Route: 061
     Dates: start: 20210701, end: 20210810

REACTIONS (6)
  - Carpal tunnel syndrome [None]
  - Hypoaesthesia [None]
  - Pain in extremity [None]
  - Paraesthesia [None]
  - Accidental exposure to product [None]
  - Exposure via direct contact [None]

NARRATIVE: CASE EVENT DATE: 20210810
